FAERS Safety Report 7579568-2 (Version None)
Quarter: 2011Q2

REPORT INFORMATION
  Report Type: 
  Country: None (occurrence: None)
  Receive Date: 20110629
  Receipt Date: 20110620
  Transmission Date: 20111010
  Serious: Yes (Other)
  Sender: FDA-Public Use
  Company Number: IT-JNJFOC-20110608134

PATIENT
  Sex: Male

DRUGS (2)
  1. PALIPERIDONE [Suspect]
     Route: 048
     Dates: start: 20110603
  2. PALIPERIDONE [Suspect]
     Indication: PSYCHOTIC DISORDER
     Route: 048
     Dates: start: 20110611, end: 20110616

REACTIONS (1)
  - PANCYTOPENIA [None]
